FAERS Safety Report 10061999 (Version 1)
Quarter: 2014Q2

REPORT INFORMATION
  Report Type: Spontaneous
  Country: US (occurrence: None)
  Receive Date: 20140404
  Receipt Date: 20140404
  Transmission Date: 20141212
  Serious: Yes (Hospitalization)
  Sender: FDA-Public Use
  Company Number: None

PATIENT
  Age: 74 Year
  Sex: Male
  Weight: 93 kg

DRUGS (4)
  1. PEMETREXED [Suspect]
     Indication: LUNG NEOPLASM MALIGNANT
     Dosage: EVERY 2 WEEKS ?SEVERAL MONTHS
     Route: 042
  2. CARBOPLATIN [Concomitant]
  3. ALLOPURINOL [Concomitant]
  4. DEXAMETHASONE [Concomitant]

REACTIONS (1)
  - Interstitial lung disease [None]
